FAERS Safety Report 23865421 (Version 1)
Quarter: 2024Q2

REPORT INFORMATION
  Report Type: Spontaneous
  Country: TN (occurrence: TN)
  Receive Date: 20240517
  Receipt Date: 20240517
  Transmission Date: 20240716
  Serious: Yes (Life-Threatening, Hospitalization, Other)
  Sender: FDA-Public Use
  Company Number: TN-CELLTRION INC.-2024TN011332

PATIENT

DRUGS (2)
  1. INFLIXIMAB [Suspect]
     Active Substance: INFLIXIMAB
     Indication: Axial spondyloarthritis
     Dosage: 5 MILLIGRAM/KILOGRAM (300 MG), EVERY 2 MONTHS
     Route: 042
     Dates: start: 20230523, end: 20240506
  2. HYDROCORTISONE HEMISUCCINATE [Concomitant]
     Active Substance: HYDROCORTISONE HEMISUCCINATE
     Dosage: UNK

REACTIONS (6)
  - Loss of consciousness [Unknown]
  - Discomfort [Unknown]
  - Hiccups [Unknown]
  - Dyspnoea [Unknown]
  - Chest pain [Unknown]
  - Hyperhidrosis [Unknown]

NARRATIVE: CASE EVENT DATE: 20240506
